FAERS Safety Report 9301593 (Version 1)
Quarter: 2013Q2

REPORT INFORMATION
  Report Type: Spontaneous
  Country: FR (occurrence: FR)
  Receive Date: 20130521
  Receipt Date: 20130521
  Transmission Date: 20140414
  Serious: Yes (Other)
  Sender: FDA-Public Use
  Company Number: FR-VERTEX PHARMACEUTICALS INC-2013-006259

PATIENT
  Sex: 0

DRUGS (6)
  1. INCIVO [Suspect]
     Indication: HEPATITIS C
     Route: 065
  2. INCIVO [Suspect]
     Indication: HIV INFECTION
  3. RIBAVIRIN [Suspect]
     Indication: HIV INFECTION
     Dosage: DOSAGE FORM: UNKNOWN
  4. RIBAVIRIN [Suspect]
     Indication: HEPATITIS C
  5. PEG-INTERFERON [Suspect]
     Indication: HIV INFECTION
     Dosage: DOSAGE FORM: UNSPECIFIED
     Route: 065
  6. PEG-INTERFERON [Suspect]
     Indication: HEPATITIS C

REACTIONS (4)
  - Neutropenia [Unknown]
  - Anaemia [Unknown]
  - Thrombocytopenia [Unknown]
  - Rash [Unknown]
